FAERS Safety Report 13051042 (Version 1)
Quarter: 2016Q4

REPORT INFORMATION
  Report Type: Spontaneous
  Country: US (occurrence: US)
  Receive Date: 20161221
  Receipt Date: 20161221
  Transmission Date: 20170207
  Serious: Yes (Other)
  Sender: FDA-Public Use
  Company Number: US-NOVOPROD-515867

PATIENT
  Age: 88 Year
  Sex: Female
  Weight: 54.42 kg

DRUGS (1)
  1. LEVEMIR [Suspect]
     Active Substance: INSULIN DETEMIR
     Indication: TYPE 2 DIABETES MELLITUS
     Dosage: 8-10 DAILY BID
     Route: 058

REACTIONS (1)
  - Blood glucose fluctuation [Unknown]
